FAERS Safety Report 9286886 (Version 2)
Quarter: 2013Q2

REPORT INFORMATION
  Report Type: Spontaneous
  Country: US (occurrence: US)
  Receive Date: 20130513
  Receipt Date: 20130618
  Transmission Date: 20140414
  Serious: No
  Sender: FDA-Public Use
  Company Number: US-PFIZER INC-2013144411

PATIENT
  Age: 30 Year
  Sex: Female

DRUGS (5)
  1. GEODON [Suspect]
     Dosage: 160 MG, AT NIGHT
  2. VISTARIL [Suspect]
     Dosage: UNK
  3. TETRACYCLINE HCL [Suspect]
     Dosage: UNK
  4. COMPAZINE [Suspect]
     Dosage: UNK
  5. LEVAQUIN [Suspect]
     Dosage: UNK

REACTIONS (1)
  - Drug hypersensitivity [Unknown]
